FAERS Safety Report 7204593-0 (Version None)
Quarter: 2010Q4

REPORT INFORMATION
  Report Type: 
  Country: None (occurrence: None)
  Receive Date: 20101230
  Receipt Date: 20101220
  Transmission Date: 20110411
  Serious: Yes (Hospitalization, Disabling, Other)
  Sender: FDA-Public Use
  Company Number: US-MERCK-1007USA02362

PATIENT
  Age: 55 Year
  Sex: Female
  Weight: 53 kg

DRUGS (1)
  1. FOSAMAX [Suspect]
     Indication: OSTEOPENIA
     Route: 048

REACTIONS (48)
  - ABSCESS ORAL [None]
  - ANAEMIA [None]
  - ANXIETY [None]
  - ARTERIAL OCCLUSIVE DISEASE [None]
  - ATROPHIC VULVOVAGINITIS [None]
  - BACK INJURY [None]
  - BLADDER PROLAPSE [None]
  - BLOOD URINE PRESENT [None]
  - BONE DENSITY DECREASED [None]
  - CAROTID BRUIT [None]
  - DENTAL CARIES [None]
  - DIARRHOEA [None]
  - DYSPEPSIA [None]
  - EAR INFECTION [None]
  - EAR PAIN [None]
  - ECCHYMOSIS [None]
  - FATIGUE [None]
  - FRACTURED COCCYX [None]
  - FRACTURED SACRUM [None]
  - HAEMATOCHEZIA [None]
  - HEADACHE [None]
  - HYPERCHOLESTEROLAEMIA [None]
  - HYPOTENSION [None]
  - HYPOTHYROIDISM [None]
  - INCISIONAL HERNIA [None]
  - INFLUENZA [None]
  - LIMB INJURY [None]
  - MIGRAINE [None]
  - MIXED INCONTINENCE [None]
  - ORAL HERPES [None]
  - ORTHOSTATIC HYPOTENSION [None]
  - OSTEONECROSIS OF JAW [None]
  - OSTEOPOROSIS [None]
  - PAIN IN JAW [None]
  - PERIPHERAL ARTERIAL OCCLUSIVE DISEASE [None]
  - ROAD TRAFFIC ACCIDENT [None]
  - SINUS CONGESTION [None]
  - SPIGELIAN HERNIA [None]
  - SPINAL DISORDER [None]
  - SPONDYLOLISTHESIS [None]
  - TEMPOROMANDIBULAR JOINT SYNDROME [None]
  - TOOTH DISORDER [None]
  - TOOTH LOSS [None]
  - TOOTHACHE [None]
  - TRISMUS [None]
  - UPPER-AIRWAY COUGH SYNDROME [None]
  - URINARY TRACT INFECTION [None]
  - VITAMIN D DEFICIENCY [None]
